FAERS Safety Report 9641393 (Version 1)
Quarter: 2013Q4

REPORT INFORMATION
  Report Type: Report from Study
  Country: US (occurrence: US)
  Receive Date: 20131023
  Receipt Date: 20131023
  Transmission Date: 20140711
  Serious: No
  Sender: FDA-Public Use
  Company Number: US-ABBVIE-12P-163-1008592-00

PATIENT
  Age: 19 Year
  Sex: Female

DRUGS (1)
  1. LUPRON DEPOT [Suspect]
     Indication: PRODUCT USED FOR UNKNOWN INDICATION
     Route: 030
     Dates: start: 20120913

REACTIONS (4)
  - Mood swings [Unknown]
  - Amnesia [Unknown]
  - Vulvovaginal pruritus [Unknown]
  - Fungal infection [Unknown]
